FAERS Safety Report 5284927-7 (Version None)
Quarter: 2007Q1

REPORT INFORMATION
  Report Type: 
  Country: None (occurrence: None)
  Receive Date: 20061229
  Receipt Date: 20060414
  Transmission Date: 20070707
  Serious: Yes (Hospitalization, Other)
  Sender: FDA-Public Use
  Company Number: PHEH2005US04535

PATIENT
  Age: 52 Year
  Sex: Female

DRUGS (14)
  1. CLOZARIL [Suspect]
     Indication: SCHIZOAFFECTIVE DISORDER
     Dosage: 75 MG, QHS, ORAL 50 MG, QD
     Route: 048
     Dates: start: 20000101, end: 20050417
  2. PREVACID [Concomitant]
  3. ABILIFY [Concomitant]
  4. VERAPAMIL [Concomitant]
  5. METHADONE HCL [Concomitant]
  6. LACTULOSE [Concomitant]
  7. KLOR-CON [Concomitant]
  8. LASIX [Concomitant]
  9. NOVOLIN NPH (INSULIN HUMAN INJECTION, ISOPHANE) [Concomitant]
  10. NOVOLIN R [Concomitant]
  11. FLEXERIL [Concomitant]
  12. PLAQUENIL [Concomitant]
  13. IMURAN [Concomitant]
  14. ALDACTONE [Concomitant]

REACTIONS (16)
  - DEEP VEIN THROMBOSIS [None]
  - EOSINOPHIL COUNT DECREASED [None]
  - HAEMATOCRIT DECREASED [None]
  - HAEMOGLOBIN DECREASED [None]
  - INFLUENZA [None]
  - LEUKOPENIA [None]
  - LOWER RESPIRATORY TRACT INFECTION [None]
  - LYMPHOCYTE COUNT DECREASED [None]
  - LYMPHOCYTE PERCENTAGE DECREASED [None]
  - MEAN CELL HAEMOGLOBIN [None]
  - MEAN CELL VOLUME ABNORMAL [None]
  - MONOCYTE COUNT DECREASED [None]
  - NEUTROPHIL PERCENTAGE INCREASED [None]
  - PULMONARY EMBOLISM [None]
  - RED BLOOD CELL COUNT DECREASED [None]
  - RED CELL DISTRIBUTION WIDTH INCREASED [None]
